FAERS Safety Report 6812508-X (Version None)
Quarter: 2010Q3

REPORT INFORMATION
  Report Type: 
  Country: None (occurrence: None)
  Receive Date: 20100701
  Receipt Date: 20100624
  Transmission Date: 20110219
  Serious: Yes (Death, Hospitalization)
  Sender: FDA-Public Use
  Company Number: BR-MEDIMMUNE-MEDI-0011109

PATIENT
  Sex: Female
  Weight: 4 kg

DRUGS (1)
  1. SYNAGIS [Suspect]

REACTIONS (5)
  - COMA [None]
  - INCORRECT DRUG ADMINISTRATION RATE [None]
  - INFLUENZA [None]
  - LUNG DISORDER [None]
  - PNEUMONIA [None]
